FAERS Safety Report 6500757-X (Version None)
Quarter: 2009Q4

REPORT INFORMATION
  Report Type: 
  Country: None (occurrence: None)
  Receive Date: 20091216
  Receipt Date: 20090209
  Transmission Date: 20100525
  Serious: No
  Sender: FDA-Public Use
  Company Number: A0767613A

PATIENT
  Age: 40 Year

DRUGS (1)
  1. COMMIT [Suspect]
     Dates: start: 20090127, end: 20090207

REACTIONS (2)
  - DRUG INEFFECTIVE [None]
  - INTENTIONAL DRUG MISUSE [None]
